FAERS Safety Report 5799237-9 (Version None)
Quarter: 2008Q3

REPORT INFORMATION
  Report Type: 
  Country: None (occurrence: None)
  Receive Date: 20080702
  Receipt Date: 20080624
  Transmission Date: 20090109
  Serious: Yes (Death, Hospitalization, Other)
  Sender: FDA-Public Use
  Company Number: US-PFIZER INC-2008046075

PATIENT
  Sex: Male

DRUGS (3)
  1. XALATAN [Suspect]
  2. PROCARDIA XL [Suspect]
  3. ZOLOFT [Suspect]

REACTIONS (3)
  - CARDIAC ARREST [None]
  - CARDIAC OPERATION [None]
  - RESPIRATORY FAILURE [None]
